FAERS Safety Report 13363832 (Version 1)
Quarter: 2017Q1

REPORT INFORMATION
  Report Type: Spontaneous
  Country: US (occurrence: US)
  Receive Date: 20170323
  Receipt Date: 20170323
  Transmission Date: 20170429
  Serious: No
  Sender: FDA-Public Use
  Company Number: US-PFIZER INC-2016570705

PATIENT
  Age: 55 Year
  Sex: Female

DRUGS (16)
  1. LYRICA [Suspect]
     Active Substance: PREGABALIN
     Dosage: 100 MG, 2X/DAY
     Route: 048
  2. PREMPRO [Concomitant]
     Active Substance: ESTROGENS, CONJUGATED\MEDROXYPROGESTERONE ACETATE
     Indication: HORMONE THERAPY
     Dosage: 1 DF, DAILY (0.45.5)
  3. VOLTAREN [Concomitant]
     Active Substance: DICLOFENAC SODIUM
     Indication: ARTHRALGIA
     Dosage: UNK
  4. PREMPRO [Concomitant]
     Active Substance: ESTROGENS, CONJUGATED\MEDROXYPROGESTERONE ACETATE
     Dosage: 1 DF, DAILY [ESTROGENS CONJUGATED: 0.45MG]/[MEDROXYPROGESTERONE ACETATE: 1.5 MG]
  5. CELECOXIB. [Concomitant]
     Active Substance: CELECOXIB
     Indication: EYE PAIN
     Dosage: 200 MG, AS NEEDED(ONE TWICE A DAY/IF NEEDED)
  6. LYRICA [Suspect]
     Active Substance: PREGABALIN
     Dosage: 100 MG, DAILY (2 A DAY)
  7. LISINOPRIL. [Concomitant]
     Active Substance: LISINOPRIL
     Indication: BLOOD PRESSURE ABNORMAL
     Dosage: 10 MG, DAILY
  8. XANAX [Concomitant]
     Active Substance: ALPRAZOLAM
     Dosage: 0.5 MG, AS NEEDED(3 X A DAY IF NEEDED)
  9. PRISTIQ EXTENDED-RELEASE [Concomitant]
     Active Substance: DESVENLAFAXINE SUCCINATE
     Indication: DEPRESSION
     Dosage: 100 MG, DAILY
  10. LEVOTHYROXINE. [Concomitant]
     Active Substance: LEVOTHYROXINE
     Indication: THYROID DISORDER
     Dosage: 25 MG, DAILY
  11. PANTOPRAZOLE [Concomitant]
     Active Substance: PANTOPRAZOLE SODIUM
     Indication: GASTRITIS
     Dosage: 40 MG, 1X/DAY
     Dates: start: 201403
  12. FLEXERIL [Concomitant]
     Active Substance: CYCLOBENZAPRINE HYDROCHLORIDE
     Indication: MUSCLE SPASMS
     Dosage: 10 MG, AS NEEDED(1 A DAY/IF NEEDED)
  13. SALONPAS PAIN RELIEF [Concomitant]
     Active Substance: MENTHOL\METHYL SALICYLATE
     Dosage: UNK [CAPSAICIN: 0.025%]/[MENTHOL: 1.25%]
  14. FENTANYL. [Concomitant]
     Active Substance: FENTANYL
     Indication: PAIN
     Dosage: 75 MG, UNK(15 PATCHES A MONTH, ONE EVERY TWO DAYS )
     Route: 062
     Dates: end: 20161124
  15. METHADONE [Concomitant]
     Active Substance: METHADONE HYDROCHLORIDE
     Dosage: 20 MG, 3X/DAY
     Dates: end: 20161120
  16. LYRICA [Suspect]
     Active Substance: PREGABALIN
     Dosage: 50 MG, 2X/DAY

REACTIONS (1)
  - Weight increased [Unknown]
